FAERS Safety Report 9753717 (Version 2)
Quarter: 2015Q3

REPORT INFORMATION
  Report Type: Spontaneous
  Country: US (occurrence: US)
  Receive Date: 20131213
  Receipt Date: 20150805
  Transmission Date: 20151125
  Serious: No
  Sender: FDA-Public Use
  Company Number: US-GILEAD-2010-0026670

PATIENT
  Age: 70 Year
  Sex: Female
  Weight: 111.58 kg

DRUGS (16)
  1. FLUOXETINE [Concomitant]
     Active Substance: FLUOXETINE\FLUOXETINE HYDROCHLORIDE
  2. LORTAB [Concomitant]
     Active Substance: ACETAMINOPHEN\HYDROCODONE BITARTRATE
  3. PROBIOTIC COMPLEX [Concomitant]
  4. CARDI-OMEGA 3 [Concomitant]
  5. EXCEDRIN EX [Concomitant]
  6. LETAIRIS [Suspect]
     Active Substance: AMBRISENTAN
     Indication: PULMONARY ARTERIAL HYPERTENSION
     Route: 048
     Dates: start: 20080308
  7. HYDROCHLOROTHIAZIDE/TRIAMTERENE [Concomitant]
  8. DAILY VITE [Concomitant]
     Active Substance: VITAMINS
  9. VITAMIN C [Concomitant]
     Active Substance: ASCORBIC ACID
  10. OSCAL [Concomitant]
     Active Substance: CALCIUM CARBONATE
  11. IRON DEXTRAN [Concomitant]
     Active Substance: IRON DEXTRAN
  12. POTASSIUM CHLORIDE. [Concomitant]
     Active Substance: POTASSIUM CHLORIDE
  13. ZOCOR [Concomitant]
     Active Substance: SIMVASTATIN
  14. LASIX [Concomitant]
     Active Substance: FUROSEMIDE
  15. NORVASC [Concomitant]
     Active Substance: AMLODIPINE BESYLATE
  16. PRILOSEC [Concomitant]
     Active Substance: OMEPRAZOLE MAGNESIUM

REACTIONS (1)
  - Red blood cell count decreased [Unknown]
